FAERS Safety Report 5863455-1 (Version None)
Quarter: 2008Q3

REPORT INFORMATION
  Report Type: 
  Country: None (occurrence: None)
  Receive Date: 20080828
  Receipt Date: 20080818
  Transmission Date: 20090109
  Serious: Yes (Other)
  Sender: FDA-Public Use
  Company Number: TR-SANOFI-SYNTHELABO-A01200810124

PATIENT
  Age: 72 Year
  Sex: Male

DRUGS (2)
  1. CLOPIDOGREL [Suspect]
     Dosage: LOADING DOSE 300 MG
     Route: 065
  2. CLOPIDOGREL [Suspect]
     Dosage: 75 MG
     Route: 065

REACTIONS (1)
  - POLYARTHRITIS [None]
